FAERS Safety Report 9038549 (Version 1)
Quarter: 2013Q1

REPORT INFORMATION
  Report Type: Report from Study
  Country: SI (occurrence: SI)
  Receive Date: 20130129
  Receipt Date: 20130129
  Transmission Date: 20140127
  Serious: Yes (Other)
  Sender: FDA-Public Use
  Company Number: SI-TEVA-381164ISR

PATIENT
  Sex: Male

DRUGS (4)
  1. TEMOZOLOMIDE [Suspect]
     Dosage: FREQUENCY IS UNKNOWN
     Dates: start: 20120902, end: 20120921
  2. MEDROL [Concomitant]
     Dosage: FREQUENCY IS UNKNOWN
  3. CONTROLOC [Concomitant]
     Dosage: FREQUENCY IS UNKNOWN
  4. GRANISETRON [Concomitant]
     Dosage: FREQUENCY IS UNKNOWN

REACTIONS (4)
  - Thrombocytopenia [Unknown]
  - Anaemia [Unknown]
  - Fatigue [Unknown]
  - Malaise [Unknown]
